FAERS Safety Report 20691518 (Version 1)
Quarter: 2022Q2

REPORT INFORMATION
  Report Type: Spontaneous
  Country: FR (occurrence: FR)
  Receive Date: 20220408
  Receipt Date: 20220408
  Transmission Date: 20220721
  Serious: Yes (Other)
  Sender: FDA-Public Use
  Company Number: FR-PFIZER INC-202200358370

PATIENT
  Age: 23 Year
  Sex: Male

DRUGS (1)
  1. PREGABALIN [Suspect]
     Active Substance: PREGABALIN
     Indication: Product used for unknown indication
     Dosage: 2400 MILLIGRAM, QD (2400 MG, DAILY)

REACTIONS (9)
  - Nightmare [Unknown]
  - Feeling hot [Unknown]
  - Nasal congestion [Unknown]
  - Hyperhidrosis [Unknown]
  - Chills [Unknown]
  - Drug dependence [Unknown]
  - Drug withdrawal syndrome [Unknown]
  - Overdose [Unknown]
  - Drug abuse [Unknown]

NARRATIVE: CASE EVENT DATE: 20200101
